FAERS Safety Report 9366365 (Version 1)
Quarter: 2013Q2

REPORT INFORMATION
  Report Type: Spontaneous
  Country: DE (occurrence: DE)
  Receive Date: 20130625
  Receipt Date: 20130625
  Transmission Date: 20140414
  Serious: Yes (Other)
  Sender: FDA-Public Use
  Company Number: DE-JNJFOC-20130608002

PATIENT
  Age: 57 Year
  Sex: Female

DRUGS (3)
  1. DOXORUBICIN [Suspect]
     Indication: NEOPLASM MALIGNANT
     Route: 042
  2. CISPLATIN [Suspect]
     Indication: NEOPLASM MALIGNANT
     Route: 042
  3. PACLITAXEL [Suspect]
     Indication: NEOPLASM MALIGNANT
     Route: 042

REACTIONS (3)
  - Polyneuropathy [Unknown]
  - Hypertension [Unknown]
  - Diarrhoea [Recovered/Resolved]
